FAERS Safety Report 5832320-8 (Version None)
Quarter: 2008Q3

REPORT INFORMATION
  Report Type: 
  Country: None (occurrence: None)
  Receive Date: 20080804
  Receipt Date: 20080728
  Transmission Date: 20090109
  Serious: Yes (Other)
  Sender: FDA-Public Use
  Company Number: B0526704A

PATIENT
  Age: 78 Year
  Sex: Male

DRUGS (1)
  1. ZANTAC [Suspect]
     Indication: PEPTIC ULCER
     Dosage: 150MG TWICE PER DAY
     Route: 048
     Dates: start: 20060101, end: 20080627

REACTIONS (2)
  - FREEZING PHENOMENON [None]
  - PARKINSONISM [None]
